FAERS Safety Report 6118138-X (Version None)
Quarter: 2009Q1

REPORT INFORMATION
  Report Type: 
  Country: None (occurrence: None)
  Receive Date: 20090314
  Receipt Date: 20090204
  Transmission Date: 20090719
  Serious: No
  Sender: FDA-Public Use
  Company Number: US-ABBOTT-09P-163-0501998-00

PATIENT
  Sex: Female
  Weight: 67.646 kg

DRUGS (1)
  1. HUMIRA [Suspect]
     Indication: DRUG USE FOR UNKNOWN INDICATION
     Route: 058

REACTIONS (4)
  - ACCIDENTAL NEEDLE STICK [None]
  - CONTUSION [None]
  - INJECTION SITE HAEMORRHAGE [None]
  - WRONG DRUG ADMINISTERED [None]
